FAERS Safety Report 4822752-9 (Version None)
Quarter: 2005Q4

REPORT INFORMATION
  Report Type: 
  Country: None (occurrence: None)
  Receive Date: 20051107
  Receipt Date: 20051107
  Transmission Date: 20060501
  Serious: Yes (Other)
  Sender: FDA-Public Use
  Company Number: None

PATIENT
  Age: 53 Year
  Sex: Male
  Weight: 70.3075 kg

DRUGS (1)
  1. BIAXIN XL [Suspect]
     Indication: PNEUMONIA
     Dosage: 500MG TWICE A DAY PO
     Route: 048
     Dates: start: 20040615, end: 20040625

REACTIONS (2)
  - HYPOGEUSIA [None]
  - HYPOSMIA [None]
